FAERS Safety Report 25529142 (Version 1)
Quarter: 2025Q3

REPORT INFORMATION
  Report Type: Spontaneous
  Country: US (occurrence: US)
  Receive Date: 20250708
  Receipt Date: 20250708
  Transmission Date: 20251020
  Serious: Yes (Hospitalization, Disabling)
  Sender: MYLAN
  Company Number: US-MYLANLABS-2025M1056379

PATIENT
  Age: 72 Year
  Sex: Male

DRUGS (8)
  1. DIAZEPAM [Suspect]
     Active Substance: DIAZEPAM
     Indication: Musculoskeletal stiffness
  2. DIAZEPAM [Suspect]
     Active Substance: DIAZEPAM
     Indication: Stiff person syndrome
     Route: 065
  3. DIAZEPAM [Suspect]
     Active Substance: DIAZEPAM
     Route: 065
  4. DIAZEPAM [Suspect]
     Active Substance: DIAZEPAM
  5. BACLOFEN [Suspect]
     Active Substance: BACLOFEN
     Indication: Musculoskeletal stiffness
  6. BACLOFEN [Suspect]
     Active Substance: BACLOFEN
     Indication: Stiff person syndrome
     Route: 048
  7. BACLOFEN [Suspect]
     Active Substance: BACLOFEN
     Route: 048
  8. BACLOFEN [Suspect]
     Active Substance: BACLOFEN

REACTIONS (2)
  - Drug ineffective [Unknown]
  - Adverse drug reaction [Unknown]

NARRATIVE: CASE EVENT DATE: 20130101
